FAERS Safety Report 19458785 (Version 6)
Quarter: 2022Q3

REPORT INFORMATION
  Report Type: Report from Study
  Country: CO (occurrence: CO)
  Receive Date: 20210624
  Receipt Date: 20220801
  Transmission Date: 20221026
  Serious: Yes (Other)
  Sender: FDA-Public Use
  Company Number: NVSC2021CO137791

PATIENT
  Sex: Female

DRUGS (6)
  1. KISQALI [Suspect]
     Active Substance: RIBOCICLIB
     Indication: Hormone receptor positive HER2 negative breast cancer
     Dosage: UNK
     Route: 048
     Dates: start: 2019
  2. KISQALI [Suspect]
     Active Substance: RIBOCICLIB
     Dosage: UNK
     Route: 048
  3. FEMARA [Suspect]
     Active Substance: LETROZOLE
     Indication: Breast cancer
     Dosage: UNK
     Route: 048
  4. LORATADINE [Suspect]
     Active Substance: LORATADINE
     Indication: Product used for unknown indication
     Dosage: UNK
     Route: 065
  5. ONDANSETRON [Suspect]
     Active Substance: ONDANSETRON
     Indication: Product used for unknown indication
     Dosage: UNK
     Route: 065
  6. GOSERELIN [Concomitant]
     Active Substance: GOSERELIN
     Indication: Product used for unknown indication
     Dosage: UNK
     Route: 065

REACTIONS (19)
  - Choking [Not Recovered/Not Resolved]
  - Metastases to lung [Unknown]
  - Sedation [Unknown]
  - Reflux gastritis [Not Recovered/Not Resolved]
  - Drug intolerance [Unknown]
  - Somnolence [Unknown]
  - Malaise [Unknown]
  - Depression [Unknown]
  - Boredom [Unknown]
  - Crying [Unknown]
  - Stress [Unknown]
  - Bone lesion [Unknown]
  - Mental disorder [Unknown]
  - Anxiety [Unknown]
  - Fatigue [Unknown]
  - Neutrophil count decreased [Unknown]
  - Neoplasm recurrence [Unknown]
  - Insomnia [Not Recovered/Not Resolved]
  - Product supply issue [Unknown]
